APPROVED DRUG PRODUCT: TOBRAMYCIN SULFATE
Active Ingredient: TOBRAMYCIN SULFATE
Strength: EQ 10MG BASE/ML
Dosage Form/Route: INJECTABLE;INJECTION
Application: A062945 | Product #001
Applicant: WATSON LABORATORIES INC
Approved: Aug 9, 1989 | RLD: No | RS: No | Type: DISCN